FAERS Safety Report 12667429 (Version 1)
Quarter: 2016Q3

REPORT INFORMATION
  Report Type: Spontaneous
  Country: US (occurrence: US)
  Receive Date: 20160819
  Receipt Date: 20160819
  Transmission Date: 20161109
  Serious: No
  Sender: FDA-Public Use
  Company Number: US-PFIZER INC-2016388387

PATIENT
  Age: 11 Year
  Sex: Male
  Weight: 63 kg

DRUGS (53)
  1. CRIZOTINIB [Suspect]
     Active Substance: CRIZOTINIB
     Indication: B-CELL TYPE ACUTE LEUKAEMIA
     Dosage: UNK
  2. VINCRISTINE SULFATE. [Suspect]
     Active Substance: VINCRISTINE SULFATE
     Indication: B-CELL TYPE ACUTE LEUKAEMIA
     Dosage: UNK
  3. NORMAL SALINE [Concomitant]
     Active Substance: SODIUM CHLORIDE
     Dosage: UNK
     Route: 042
     Dates: start: 20160726
  4. DIPHENHYDRAMINE. [Concomitant]
     Active Substance: DIPHENHYDRAMINE
     Indication: PRURITUS
     Dosage: UNK, AS NEEDED (25 MG 0.5 ML)
     Route: 042
     Dates: start: 20160807
  5. DOTAREM [Concomitant]
     Active Substance: GADOTERATE MEGLUMINE
     Dosage: UNK (13.7 ML)
     Route: 042
     Dates: start: 20160809
  6. LIDOCAINE. [Concomitant]
     Active Substance: LIDOCAINE
     Indication: PHLEBOTOMY
     Dosage: 0.2 UNK, AS NEEDED
     Route: 058
     Dates: start: 20160726
  7. MEROPENEM. [Concomitant]
     Active Substance: MEROPENEM
     Indication: MENINGITIS
     Dosage: UNK (2000 MG/100 ML IV Q8H)
     Route: 042
     Dates: start: 20160807
  8. FLAGYL [Concomitant]
     Active Substance: METRONIDAZOLE\METRONIDAZOLE HYDROCHLORIDE
     Indication: INFECTION
     Dosage: UNK (500 MG/100 ML IV Q8H)
     Route: 042
     Dates: start: 20160811
  9. MICAFUNGIN [Concomitant]
     Active Substance: MICAFUNGIN
     Indication: INFECTION
     Dosage: UNK, DAILY (150 MG/150 ML)
     Route: 042
     Dates: start: 20160809
  10. ZOFRAN [Concomitant]
     Active Substance: ONDANSETRON HYDROCHLORIDE
     Indication: NAUSEA
     Dosage: 8 MG, UNK (8 MG ORAL Q8H)
     Route: 048
     Dates: start: 20160722
  11. PENTAFLUOROPROPANE W/TETRAFLUOROETHANE [Concomitant]
     Indication: PHLEBECTOMY
     Dosage: 1 DF, AS NEEDED
     Route: 061
     Dates: start: 20160726
  12. ZANTAC [Concomitant]
     Active Substance: RANITIDINE HYDROCHLORIDE
     Dosage: UNK, 2X/DAY (15 MG/ML) (150MG=10ML)
     Route: 048
     Dates: start: 20160722
  13. SODIUM CHLORIDE. [Concomitant]
     Active Substance: SODIUM CHLORIDE
     Dosage: 1 ML, AS NEEDED
     Route: 042
     Dates: start: 20160726
  14. ACTIGALL [Concomitant]
     Active Substance: URSODIOL
     Indication: PARENTERAL NUTRITION
  15. LIDOCAINE. [Concomitant]
     Active Substance: LIDOCAINE
     Dosage: UNK, AS NEEDED
     Route: 061
  16. ARTIFICIAL TEARS /00222401/ [Concomitant]
     Indication: DRY EYE
     Dosage: 2 DROP (S) EYES, BOTH TID PRN
     Dates: start: 20160731
  17. MITOXANTRONE HCL [Suspect]
     Active Substance: MITOXANTRONE HYDROCHLORIDE
     Indication: B-CELL TYPE ACUTE LEUKAEMIA
     Dosage: UNK
  18. DEX [Suspect]
     Active Substance: DEXAMETHASONE
     Indication: B-CELL TYPE ACUTE LEUKAEMIA
     Dosage: UNK
  19. TYLENOL [Concomitant]
     Active Substance: ACETAMINOPHEN
     Indication: PYREXIA
     Dosage: UNK, AS NEEDED (500 MG 15.2 ML)
     Route: 048
     Dates: start: 20160727
  20. CLONAZEPAM. [Concomitant]
     Active Substance: CLONAZEPAM
     Dosage: UNK, 2X/DAY (0.25 MG 2.5 ML)
     Dates: start: 20160726
  21. BENADRYL [Concomitant]
     Active Substance: DIPHENHYDRAMINE HYDROCHLORIDE
     Dosage: UNK, AS NEEDED (25 MG 0.5 ML)
     Route: 042
     Dates: start: 20160730
  22. FUROSEMIDE. [Concomitant]
     Active Substance: FUROSEMIDE
     Dosage: UNK (30 MG 3 ML ) (Q6H)
     Route: 042
     Dates: start: 20160810
  23. ATIVAN [Concomitant]
     Active Substance: LORAZEPAM
     Indication: ANXIETY
     Dosage: UNK, 3X/DAY (0.25 MG 0.13 ML)
     Route: 042
  24. DILAUDID [Concomitant]
     Active Substance: HYDROMORPHONE HYDROCHLORIDE
     Dosage: UNK, AS NEEDED (1.5 MG 1.5 ML)
     Route: 048
     Dates: start: 20160729
  25. MOUTH WASH [Concomitant]
     Dosage: UNK, AS NEEDED (5 ML ORAL Q2H PRN)
     Route: 048
     Dates: start: 20160805
  26. TYLENOL [Concomitant]
     Active Substance: ACETAMINOPHEN
     Indication: PAIN
     Dosage: UNK, AS NEEDED (650 MG 20.3 ML)
     Dates: start: 20160730
  27. BIOTENE MOUTHWASH [Concomitant]
     Active Substance: CETYLPYRIDINIUM CHLORIDE
     Dosage: 15 ML, 3X/DAY
     Dates: start: 20160805
  28. LIDOCAINE. [Concomitant]
     Active Substance: LIDOCAINE
     Dosage: UNK
     Dates: start: 20160726
  29. NYSTATIN. [Concomitant]
     Active Substance: NYSTATIN
     Dosage: UNK, 4X/DAY (10 ML SWISH AND SWALLOW QID)
     Dates: start: 20160807
  30. PENTAMIDINE [Concomitant]
     Active Substance: PENTAMIDINE
     Dosage: UNK
     Dates: start: 20160722
  31. ACTIGALL [Concomitant]
     Active Substance: URSODIOL
     Indication: CHOLESTASIS
     Dosage: UNK, 2X/DAY (300 MG 5 ML)
     Route: 048
     Dates: start: 20160726
  32. DILAUDID [Concomitant]
     Active Substance: HYDROMORPHONE HYDROCHLORIDE
     Indication: PAIN
     Dosage: UNK
     Dates: start: 20160807
  33. HEPARIN FLUSH [Concomitant]
     Active Substance: HEPARIN SODIUM
     Dosage: UNK, AS NEEDED (300 UNITS 3 ML)
     Route: 042
     Dates: start: 20160726
  34. LEVOCARNITINE. [Concomitant]
     Active Substance: LEVOCARNITINE
     Dosage: UNK, 3X/DAY (100 MG/ML)
     Route: 048
     Dates: start: 20160722
  35. MIRALAX [Concomitant]
     Active Substance: POLYETHYLENE GLYCOL 3350
     Indication: CONSTIPATION
     Dosage: UNK, DAILY (17 GM 1 PACKET)
     Route: 048
     Dates: start: 20160805
  36. SARGRAMOSTIM [Concomitant]
     Active Substance: SARGRAMOSTIM
     Dosage: UNK, CYCLIC (400 MCG 20 ML INJ IV DAILY)
     Route: 042
     Dates: start: 20160810
  37. ALDACTONE [Concomitant]
     Active Substance: SPIRONOLACTONE
     Dosage: 25 MG, 2X/DAY
     Route: 048
     Dates: start: 20160810
  38. ERWINIA [Suspect]
     Active Substance: ASPARAGINASE ERWINIA CHRYSANTHEMI
     Indication: B-CELL TYPE ACUTE LEUKAEMIA
     Dosage: UNK
  39. ATIVAN [Concomitant]
     Active Substance: LORAZEPAM
     Indication: NAUSEA
     Dosage: UNK, AS NEEDED (0.5 MG 0.25 ML)
     Route: 042
     Dates: start: 20160727
  40. ATIVAN [Concomitant]
     Active Substance: LORAZEPAM
     Indication: VOMITING
  41. MOUTH WASH [Concomitant]
     Indication: ORAL PAIN
     Dosage: UNK, AS NEEDED (5 ML ORAL Q2H PRN)
     Route: 048
     Dates: start: 20160805
  42. ZOFRAN [Concomitant]
     Active Substance: ONDANSETRON HYDROCHLORIDE
     Indication: VOMITING
     Dosage: 4 MG, AS NEEDED (4 MG 1 TAB ORAL Q8H)
     Route: 048
     Dates: start: 20160804
  43. DILAUDID [Concomitant]
     Active Substance: HYDROMORPHONE HYDROCHLORIDE
     Dosage: UNK, AS NEEDED (0.5 MG 0.25 ML)
     Route: 042
     Dates: start: 20160811
  44. HYDROCORTISONE. [Concomitant]
     Active Substance: HYDROCORTISONE
     Dosage: UNK, AS NEEDED (100 MG 2 ML)
     Route: 042
     Dates: start: 20160730
  45. LIDOCAINE. [Concomitant]
     Active Substance: LIDOCAINE
     Dosage: 0.2 UNK, AS NEEDED
     Route: 042
     Dates: start: 20160726
  46. LINEZOLID. [Concomitant]
     Active Substance: LINEZOLID
     Dosage: UNK (600 MG/ 300 ML IV Q12 H)
     Route: 042
     Dates: start: 20160808
  47. DILAUDID [Concomitant]
     Active Substance: HYDROMORPHONE HYDROCHLORIDE
     Dosage: UNK, AS NEEDED (1 MG/ML)
     Route: 048
     Dates: start: 20160722
  48. CLONAZEPAM. [Concomitant]
     Active Substance: CLONAZEPAM
     Dosage: UNK, 2X/DAY (.1 MG/ML) (2.5 CC)
     Route: 048
     Dates: start: 20160722
  49. NEUPOGEN [Concomitant]
     Active Substance: FILGRASTIM
     Dosage: UNK, DAILY (340 MCG  17 ML)
     Route: 042
     Dates: start: 20160807
  50. GRANISETRON [Concomitant]
     Active Substance: GRANISETRON
     Dosage: UNK (1 MG 1 ML) (Q12H)
     Route: 042
     Dates: start: 20160802
  51. PENTAMIDINE [Concomitant]
     Active Substance: PENTAMIDINE
     Indication: EVIDENCE BASED TREATMENT
     Dosage: UNK (300 MG/5 ML)
     Dates: start: 20160801
  52. RANITIDINE. [Concomitant]
     Active Substance: RANITIDINE
     Indication: HYPERSENSITIVITY
     Dosage: UNK, AS NEEDED (50 MG 25 ML INJ IV ONE TIME PRN)
     Route: 042
     Dates: start: 20160727
  53. LEVOCARNITINE. [Concomitant]
     Active Substance: LEVOCARNITINE
     Dosage: UNK, 3X/DAY (1000MG 5ML)
     Route: 042
     Dates: start: 20160726

REACTIONS (4)
  - Product use issue [Unknown]
  - Disease progression [Unknown]
  - B-cell type acute leukaemia [Unknown]
  - Transaminases increased [Unknown]
